FAERS Safety Report 9570889 (Version 1)
Quarter: 2013Q4

REPORT INFORMATION
  Report Type: Report from Study
  Country: LB (occurrence: LB)
  Receive Date: 20131001
  Receipt Date: 20131001
  Transmission Date: 20140711
  Serious: Yes (Hospitalization)
  Sender: FDA-Public Use
  Company Number: LB-SA-2013SA094924

PATIENT
  Age: 70 Year
  Sex: Female

DRUGS (11)
  1. LANTUS [Suspect]
     Indication: DIABETES MELLITUS
     Dosage: DOSE:22 UNIT(S)
     Route: 058
  2. ONGLYZA [Concomitant]
     Indication: DIABETES MELLITUS
     Route: 048
  3. LIPONORM [Concomitant]
     Route: 048
  4. ESIDREX [Concomitant]
     Route: 048
  5. ASPIRIN [Concomitant]
     Route: 048
  6. ADENURIC [Concomitant]
     Route: 048
  7. DIOVANE [Concomitant]
     Route: 048
  8. AMLOR [Concomitant]
     Route: 048
  9. DEANXIT [Concomitant]
     Route: 048
  10. KERLON [Concomitant]
     Route: 048
  11. NANOFIB [Concomitant]
     Route: 048

REACTIONS (3)
  - Viral infection [Recovered/Resolved]
  - Diarrhoea [Recovered/Resolved]
  - Abdominal pain upper [Recovered/Resolved]
